FAERS Safety Report 9096032 (Version 2)
Quarter: 2013Q1

REPORT INFORMATION
  Report Type: Spontaneous
  Country: PT (occurrence: PT)
  Receive Date: 20130207
  Receipt Date: 20130208
  Transmission Date: 20140127
  Serious: Yes (Death)
  Sender: FDA-Public Use
  Company Number: PT-ROCHE-1187483

PATIENT
  Age: 55 Year
  Sex: Male
  Weight: 65 kg

DRUGS (7)
  1. RIVOTRIL [Suspect]
     Indication: EPILEPSY
     Route: 048
     Dates: start: 20121117, end: 20130107
  2. RIVOTRIL [Suspect]
     Route: 048
     Dates: start: 20121117, end: 20130107
  3. BISACODIL [Concomitant]
     Indication: CONSTIPATION
     Route: 054
     Dates: start: 20130105, end: 20130107
  4. IPRATROPIUM BROMIDE [Concomitant]
     Indication: SECRETION DISCHARGE
     Route: 048
     Dates: start: 20130105, end: 20130107
  5. BUTYLSCOPOLAMINE [Concomitant]
     Route: 058
     Dates: start: 20121217, end: 20130107
  6. MIDAZOLAM [Concomitant]
     Indication: CONVULSION
     Route: 058
     Dates: start: 20130107
  7. MIDAZOLAM [Concomitant]
     Indication: FEELING JITTERY

REACTIONS (3)
  - Death [Fatal]
  - Oral mucosal discolouration [Not Recovered/Not Resolved]
  - Wrong technique in drug usage process [Unknown]
